FAERS Safety Report 20015901 (Version 1)
Quarter: 2021Q4

REPORT INFORMATION
  Report Type: Spontaneous
  Country: US (occurrence: None)
  Receive Date: 20211101
  Receipt Date: 20211101
  Transmission Date: 20220304
  Serious: Yes (Other)
  Sender: FDA-Public Use
  Company Number: None

PATIENT
  Sex: Male

DRUGS (3)
  1. ERLEADA [Suspect]
     Active Substance: APALUTAMIDE
     Dosage: TAKE 4 TABLETS BY MOUTH ONCE DAILY
     Route: 048
     Dates: start: 20210804
  2. DILANTIN [Concomitant]
     Active Substance: PHENYTOIN
  3. XTANDI [Concomitant]
     Active Substance: ENZALUTAMIDE

REACTIONS (2)
  - Drug ineffective [None]
  - Seizure [None]
